FAERS Safety Report 24927331 (Version 1)
Quarter: 2025Q1

REPORT INFORMATION
  Report Type: Spontaneous
  Country: AU (occurrence: AU)
  Receive Date: 20250205
  Receipt Date: 20250205
  Transmission Date: 20250408
  Serious: Yes (Other)
  Sender: MACLEODS
  Company Number: AU-MACLEODS PHARMA-MAC2025051530

PATIENT

DRUGS (1)
  1. LIDOCAINE [Suspect]
     Active Substance: LIDOCAINE
     Indication: Local anaesthesia
     Route: 065

REACTIONS (5)
  - Local anaesthetic systemic toxicity [Unknown]
  - Hallucination [Unknown]
  - Hypoaesthesia oral [Unknown]
  - Agitation [Unknown]
  - Tinnitus [Unknown]
